FAERS Safety Report 16720541 (Version 1)
Quarter: 2019Q4

REPORT INFORMATION
  Report Type: Spontaneous
  Country: US (occurrence: US)
  Receive Date: 20190819
  Receipt Date: 20190819
  Transmission Date: 20200122
  Serious: Yes (Other)
  Sender: FDA-Public Use
  Company Number: None

PATIENT
  Sex: Female

DRUGS (6)
  1. LISINOPRIL, NEURONTIN [Concomitant]
  2. ELIQUIS, LIPITOR [Concomitant]
  3. VITAMIN D [Concomitant]
     Active Substance: VITAMIN D NOS
  4. AMITRIPTYLIN, ASPIR-LOW [Concomitant]
  5. TIZANIDINE, TRAMADOL [Concomitant]
  6. XELJANZ [Suspect]
     Active Substance: TOFACITINIB CITRATE
     Indication: RHEUMATOID ARTHRITIS
     Route: 048
     Dates: start: 20140204

REACTIONS (1)
  - Cerebrovascular accident [None]
